FAERS Safety Report 10550937 (Version 1)
Quarter: 2014Q4

REPORT INFORMATION
  Report Type: Spontaneous
  Country: US (occurrence: None)
  Receive Date: 20141028
  Receipt Date: 20141028
  Transmission Date: 20150529
  Serious: Yes (Life-Threatening, Hospitalization)
  Sender: FDA-Public Use
  Company Number: None

PATIENT
  Age: 30 Year
  Sex: Female
  Weight: 86.5 kg

DRUGS (9)
  1. LORAZEPAM. [Concomitant]
     Active Substance: LORAZEPAM
  2. PANCRELIPASE. [Concomitant]
     Active Substance: PANCRELIPASE
  3. SUCRALFATE. [Concomitant]
     Active Substance: SUCRALFATE
  4. TRAMADOL [Concomitant]
     Active Substance: TRAMADOL
  5. CYCLOBENZAPRINE [Concomitant]
     Active Substance: CYCLOBENZAPRINE
  6. PANTOPRAZOLE [Concomitant]
     Active Substance: PANTOPRAZOLE SODIUM
  7. LAMOTRIGINE. [Concomitant]
     Active Substance: LAMOTRIGINE
  8. DULOXETINE [Suspect]
     Active Substance: DULOXETINE
     Indication: DEPRESSION
     Dosage: 1 PILL DAILY X 1 WEEK THEN 2 ?QD?ORAL
     Route: 048
     Dates: start: 20140813, end: 20141018
  9. IBUPROFEN. [Concomitant]
     Active Substance: IBUPROFEN

REACTIONS (2)
  - Alcohol use [None]
  - Intentional overdose [None]

NARRATIVE: CASE EVENT DATE: 20141026
